FAERS Safety Report 4286438-4 (Version None)
Quarter: 2004Q1

REPORT INFORMATION
  Report Type: 
  Country: None (occurrence: None)
  Receive Date: 20040204
  Receipt Date: 20040126
  Transmission Date: 20041129
  Serious: Yes (Other)
  Sender: FDA-Public Use
  Company Number: 2004196304BR

PATIENT

DRUGS (2)
  1. FRAGMIN [Suspect]
     Indication: PHLEBOTHROMBOSIS
     Dosage: SEE IMAGE
     Route: 058
  2. FRAGMIN [Suspect]

REACTIONS (2)
  - PHARMACEUTICAL PRODUCT COMPLAINT [None]
  - PULMONARY EMBOLISM [None]
